FAERS Safety Report 17253844 (Version 1)
Quarter: 2020Q1

REPORT INFORMATION
  Report Type: Spontaneous
  Country: US (occurrence: US)
  Receive Date: 20200109
  Receipt Date: 20200109
  Transmission Date: 20200409
  Serious: Yes (Hospitalization, Other)
  Sender: FDA-Public Use
  Company Number: US-AMNEAL PHARMACEUTICALS-2019-AMRX-02391

PATIENT
  Age: 47 Year
  Sex: Female
  Weight: 76.19 kg

DRUGS (12)
  1. ACTIVELLA [Suspect]
     Active Substance: ESTRADIOL\NORETHINDRONE ACETATE
     Indication: UTERINE LEIOMYOMA
     Dosage: 1 DOSAGE FORM, QD
     Route: 048
     Dates: start: 20170210, end: 20170725
  2. FERROUS SULPHATE [FERROUS SULFATE] [Concomitant]
     Active Substance: FERROUS SULFATE
     Indication: ANAEMIA
     Dosage: 325 MILLIGRAM, QD
     Route: 048
     Dates: start: 2009, end: 201709
  3. PROBIOTICS NOS [Concomitant]
     Active Substance: PROBIOTICS NOS
     Indication: GENERAL PHYSICAL CONDITION
     Dosage: UNK
     Route: 048
     Dates: start: 2009
  4. ACTIVELLA [Suspect]
     Active Substance: ESTRADIOL\NORETHINDRONE ACETATE
     Indication: MENORRHAGIA
  5. TURMERIC ROOT EXTRACT [Concomitant]
     Active Substance: TURMERIC
     Indication: SUPPLEMENTATION THERAPY
     Dosage: 500 MILLIGRAM, QD
     Route: 048
     Dates: start: 2012
  6. PANTOTHENIC ACID [Concomitant]
     Active Substance: PANTOTHENIC ACID
     Indication: GENERAL PHYSICAL CONDITION
     Dosage: UNK
     Route: 048
     Dates: start: 2009
  7. VIGRAN [Concomitant]
     Active Substance: VITAMINS
     Indication: GENERAL PHYSICAL CONDITION
     Dosage: UNK
     Route: 048
     Dates: start: 2009
  8. ELAGOLIX [Suspect]
     Active Substance: ELAGOLIX
     Indication: MENORRHAGIA
  9. MAGNESIUM [Concomitant]
     Active Substance: MAGNESIUM
     Indication: GENERAL PHYSICAL CONDITION
     Dosage: UNK
     Route: 048
     Dates: start: 2009
  10. ELAGOLIX [Suspect]
     Active Substance: ELAGOLIX
     Indication: UTERINE LEIOMYOMA
     Dosage: 300 MILLIGRAM, 2X/DAY
     Route: 048
     Dates: start: 20170210, end: 20170725
  11. CHROMIUM PICOLINATE [Concomitant]
     Active Substance: CHROMIUM PICOLINATE
     Indication: GENERAL PHYSICAL CONDITION
     Dosage: UNK
     Route: 048
     Dates: start: 2009
  12. VITAMIN D [ERGOCALCIFEROL] [Concomitant]
     Active Substance: ERGOCALCIFEROL
     Indication: GENERAL PHYSICAL CONDITION
     Dosage: UNK
     Route: 048
     Dates: start: 2009

REACTIONS (2)
  - Menorrhagia [Recovered/Resolved]
  - Uterine leiomyoma [Recovered/Resolved]

NARRATIVE: CASE EVENT DATE: 20170920
